FAERS Safety Report 7812706-2 (Version None)
Quarter: 2011Q4

REPORT INFORMATION
  Report Type: 
  Country: None (occurrence: None)
  Receive Date: 20111011
  Receipt Date: 20110926
  Transmission Date: 20120403
  Serious: Yes (Other)
  Sender: FDA-Public Use
  Company Number: FK201102034

PATIENT
  Sex: Female

DRUGS (3)
  1. MYCOPHENOLATE MOFETIL [Concomitant]
  2. PREDNISOLONE [Concomitant]
  3. METHYLPREDNISOLONE SODIUM SUCCINATE [Suspect]
     Indication: STEROID THERAPY
     Dosage: INTRAVENOUS (NOT OTHERWISE SPECIFIED)
     Route: 042

REACTIONS (5)
  - CYTOMEGALOVIRUS COLITIS [None]
  - CLOSTRIDIAL INFECTION [None]
  - RESPIRATORY DISORDER [None]
  - SPUTUM CULTURE POSITIVE [None]
  - NOCARDIA TEST POSITIVE [None]
